FAERS Safety Report 9136779 (Version 1)
Quarter: 2013Q1

REPORT INFORMATION
  Report Type: Spontaneous
  Country: US (occurrence: US)
  Receive Date: 20130304
  Receipt Date: 20130304
  Transmission Date: 20140127
  Serious: No
  Sender: FDA-Public Use
  Company Number: US-ABBOTT-13P-163-1048072-00

PATIENT
  Age: 65 Year
  Sex: Male
  Weight: 113.5 kg

DRUGS (4)
  1. ANDROGEL [Suspect]
     Indication: OSTEOPENIA
     Dosage: 6 PUMP ACTUATIONS
     Dates: start: 2013
  2. ANDROGEL [Suspect]
     Indication: ERECTILE DYSFUNCTION
  3. OMEPRAZOLE [Concomitant]
     Indication: GASTROOESOPHAGEAL REFLUX DISEASE
  4. SYNTHROID [Concomitant]
     Indication: HYPOTHYROIDISM

REACTIONS (1)
  - Off label use [Unknown]
